FAERS Safety Report 17014198 (Version 1)
Quarter: 2019Q4

REPORT INFORMATION
  Report Type: Spontaneous
  Country: GB (occurrence: GB)
  Receive Date: 20191111
  Receipt Date: 20191111
  Transmission Date: 20200122
  Serious: Yes (Disabling, Other)
  Sender: FDA-Public Use
  Company Number: GB-AUROBINDO-AUR-APL-2019-071042

PATIENT
  Age: 46 Year
  Sex: Female
  Weight: 100 kg

DRUGS (1)
  1. SERTRALINE [Suspect]
     Active Substance: SERTRALINE HYDROCHLORIDE
     Indication: DEPRESSION
     Dosage: UNK
     Route: 048
     Dates: start: 20170322, end: 20170422

REACTIONS (2)
  - Diarrhoea [Not Recovered/Not Resolved]
  - Bile acid malabsorption [Not Recovered/Not Resolved]

NARRATIVE: CASE EVENT DATE: 20170322
